FAERS Safety Report 5936021-7 (Version None)
Quarter: 2008Q4

REPORT INFORMATION
  Report Type: 
  Country: None (occurrence: None)
  Receive Date: 20081030
  Receipt Date: 20071122
  Transmission Date: 20090506
  Serious: Yes (Hospitalization, Other)
  Sender: FDA-Public Use
  Company Number: PHMT2007CA02011

PATIENT
  Sex: Male

DRUGS (9)
  1. EXELON [Interacting]
     Indication: DEMENTIA ALZHEIMER'S TYPE
     Dosage: 1.5 MG, BID
     Route: 048
     Dates: start: 20060904
  2. EXELON [Interacting]
     Dosage: 3 MG, BID
     Route: 048
     Dates: start: 20061004
  3. HYDROCHLOROTHIAZIDE [Suspect]
  4. ATACAND [Interacting]
  5. ANTIPSYCHOTICS [Concomitant]
     Dosage: UNK, UNK
  6. ANXIOLYTICS [Concomitant]
     Dosage: UNK, UNK
  7. SEROQUEL [Concomitant]
  8. LIPITOR [Concomitant]
  9. NITROGLYCERIN [Concomitant]

REACTIONS (8)
  - ATRIOVENTRICULAR BLOCK [None]
  - BALANCE DISORDER [None]
  - BRADYCARDIA [None]
  - DIZZINESS POSTURAL [None]
  - ORTHOSTATIC HYPOTENSION [None]
  - PRESYNCOPE [None]
  - SICK SINUS SYNDROME [None]
  - SYNCOPE [None]
